FAERS Safety Report 8163165-4 (Version None)
Quarter: 2012Q1

REPORT INFORMATION
  Report Type: 
  Country: None (occurrence: None)
  Receive Date: 20120224
  Receipt Date: 20110407
  Transmission Date: 20120608
  Serious: No
  Sender: FDA-Public Use
  Company Number: US-PFIZER INC-K201100427

PATIENT
  Age: 72 Year
  Sex: Male
  Weight: 126.98 kg

DRUGS (4)
  1. FLECTOR [Suspect]
     Indication: BACK PAIN
     Dosage: UNK
     Route: 061
     Dates: start: 20110401, end: 20110401
  2. FLECTOR [Suspect]
     Dosage: UNK
     Route: 061
  3. MOBIC [Concomitant]
     Dosage: UNK
  4. ASPIRIN [Concomitant]
     Dosage: UNK

REACTIONS (5)
  - APPLICATION SITE RASH [None]
  - APPLICATION SITE PRURITUS [None]
  - APPLICATION SITE PAIN [None]
  - APPLICATION SITE WARMTH [None]
  - APPLICATION SITE DISCHARGE [None]
